FAERS Safety Report 7180147-X (Version None)
Quarter: 2010Q4

REPORT INFORMATION
  Report Type: 
  Country: None (occurrence: None)
  Receive Date: 20101221
  Receipt Date: 20100915
  Transmission Date: 20110411
  Serious: No
  Sender: FDA-Public Use
  Company Number: US-PFIZER INC-2010117507

PATIENT
  Sex: Female
  Weight: 77.11 kg

DRUGS (4)
  1. PRISTIQ [Suspect]
     Dates: start: 20100915
  2. OMEPRAZOLE [Concomitant]
  3. SIMVASTATIN [Concomitant]
     Indication: BLOOD CHOLESTEROL
  4. 2 UNKNOWN HIGH BLOOD PRESSURE MEDICATIONS [Concomitant]

REACTIONS (1)
  - NAUSEA [None]
